FAERS Safety Report 14803312 (Version 2)
Quarter: 2018Q2

REPORT INFORMATION
  Report Type: Spontaneous
  Country: US (occurrence: US)
  Receive Date: 20180425
  Receipt Date: 20180623
  Transmission Date: 20180711
  Serious: No
  Sender: FDA-Public Use
  Company Number: US-GLENMARK PHARMACEUTICALS-2018GMK032655

PATIENT

DRUGS (1)
  1. IMIQUIMOD. [Suspect]
     Active Substance: IMIQUIMOD
     Indication: SKIN PAPILLOMA
     Dosage: UNK, EVERY OTHER DAY
     Route: 065
     Dates: end: 20180216

REACTIONS (6)
  - Erythema [Unknown]
  - Product administered at inappropriate site [Unknown]
  - Malaise [Unknown]
  - Influenza like illness [Unknown]
  - Skin papilloma [Unknown]
  - Condition aggravated [Unknown]
